FAERS Safety Report 8858727 (Version 1)
Quarter: 2012Q4

REPORT INFORMATION
  Report Type: 
  Country: US (occurrence: US)
  Receive Date: 20121024
  Receipt Date: 20121024
  Transmission Date: 20130627
  Serious: Yes (Hospitalization)
  Sender: FDA-Public Use
  Company Number: US-MERCK-1210USA005020

PATIENT
  Age: 68 Year
  Sex: Male

DRUGS (2)
  1. SAPHRIS [Suspect]
     Indication: SCHIZOPHRENIA
     Dosage: 5 mg, bid
     Route: 060
  2. GEODON [Concomitant]
     Dosage: UNK

REACTIONS (1)
  - Heart rate decreased [Unknown]
